FAERS Safety Report 16057881 (Version 1)
Quarter: 2019Q1

REPORT INFORMATION
  Report Type: Spontaneous
  Country: US (occurrence: US)
  Receive Date: 20190311
  Receipt Date: 20190311
  Transmission Date: 20190418
  Serious: Yes (Hospitalization, Other)
  Sender: FDA-Public Use
  Company Number: US-CASPER PHARMA LLC-2019CAS000089

PATIENT
  Age: 68 Year
  Sex: Female

DRUGS (4)
  1. VALSARTAN AND HYDROCHLOROTHIAZIDE [Concomitant]
     Active Substance: HYDROCHLOROTHIAZIDE\VALSARTAN
     Indication: HYPERTENSION
     Dosage: 320 TO 12.5 MILLIGRAM, QD
     Route: 065
  2. VITAMIN D [Concomitant]
     Active Substance: CHOLECALCIFEROL
     Indication: MACULAR DEGENERATION
     Dosage: 800 INTERNATIONAL UNIT, QD
     Route: 065
  3. CALCIUM [Concomitant]
     Active Substance: CALCIUM
     Indication: MACULAR DEGENERATION
     Dosage: 600 MILLIGRAM, QD
     Route: 065
  4. VITAMIN A PALMITATE [Suspect]
     Active Substance: VITAMIN A PALMITATE
     Indication: MACULAR DEGENERATION
     Dosage: 11000 INTERNATIONAL UNIT, QD
     Route: 065

REACTIONS (2)
  - Hypercalcaemia [Recovered/Resolved]
  - Product use in unapproved indication [Unknown]
